FAERS Safety Report 6297906-8 (Version None)
Quarter: 2009Q3

REPORT INFORMATION
  Report Type: 
  Country: None (occurrence: None)
  Receive Date: 20090805
  Receipt Date: 20090728
  Transmission Date: 20100115
  Serious: Yes (Hospitalization)
  Sender: FDA-Public Use
  Company Number: A0702492A

PATIENT
  Age: 64 Year
  Sex: Male

DRUGS (10)
  1. AVANDIA [Suspect]
     Dosage: 4MG PER DAY
     Route: 048
     Dates: start: 20050101, end: 20060601
  2. NEURONTIN [Concomitant]
  3. TOPROL-XL [Concomitant]
  4. PRAVACHOL [Concomitant]
  5. NEXIUM [Concomitant]
  6. GEMFIBROZIL [Concomitant]
  7. SULFASALAZINE [Concomitant]
  8. DIFLUCAN [Concomitant]
  9. CPAP [Concomitant]
  10. PLAVIX [Concomitant]
     Dates: start: 20020416

REACTIONS (2)
  - CORONARY ARTERY DISEASE [None]
  - MYOCARDIAL INFARCTION [None]
